FAERS Safety Report 5878010-7 (Version None)
Quarter: 2008Q3

REPORT INFORMATION
  Report Type: 
  Country: None (occurrence: None)
  Receive Date: 20080909
  Receipt Date: 20080909
  Transmission Date: 20090109
  Serious: Yes (Life-Threatening, Hospitalization)
  Sender: FDA-Public Use
  Company Number: None

PATIENT
  Age: 33 Year
  Sex: Male
  Weight: 77.1115 kg

DRUGS (2)
  1. REMICADE [Suspect]
     Indication: CROHN'S DISEASE
     Dates: start: 20080115, end: 20080515
  2. HUMIRA [Suspect]
     Dates: start: 20080630, end: 20080728

REACTIONS (3)
  - BILE DUCT STONE [None]
  - CHOLANGITIS SCLEROSING [None]
  - DRUG HYPERSENSITIVITY [None]
